FAERS Safety Report 24927115 (Version 1)
Quarter: 2025Q1

REPORT INFORMATION
  Report Type: Spontaneous
  Country: US (occurrence: US)
  Receive Date: 20250205
  Receipt Date: 20250205
  Transmission Date: 20250409
  Serious: No
  Sender: KARYOPHARM THERAPEUTICS
  Company Number: US-KARYOPHARM-2025KPT000111

PATIENT

DRUGS (13)
  1. XPOVIO [Suspect]
     Active Substance: SELINEXOR
     Indication: Brain neoplasm malignant
     Dosage: 80 MG, WEEKLY
     Route: 048
  2. ALCLOMETASONE DIPROPIONATE [Concomitant]
     Active Substance: ALCLOMETASONE DIPROPIONATE
  3. CELECOXIB [Concomitant]
     Active Substance: CELECOXIB
  4. DEXAMETHASONE [Concomitant]
     Active Substance: DEXAMETHASONE
  5. ECOTRIN [Concomitant]
     Active Substance: ASPIRIN
  6. ESTRACE [Concomitant]
     Active Substance: ESTRADIOL
  7. GRANISETRON HYDROCHLORIDE [Concomitant]
     Active Substance: GRANISETRON HYDROCHLORIDE
  8. PANTOPRAZOLE SODIUM [Concomitant]
     Active Substance: PANTOPRAZOLE SODIUM
  9. PROGESTERONE [Concomitant]
     Active Substance: PROGESTERONE
  10. SIROLIMUS [Concomitant]
     Active Substance: SIROLIMUS
  11. TEMODAR [Concomitant]
     Active Substance: TEMOZOLOMIDE
  12. TEMOZOLOMIDE [Concomitant]
     Active Substance: TEMOZOLOMIDE
  13. VIMPAT [Concomitant]
     Active Substance: LACOSAMIDE

REACTIONS (1)
  - Full blood count decreased [Unknown]
